FAERS Safety Report 4902610-1 (Version None)
Quarter: 2006Q1

REPORT INFORMATION
  Report Type: 
  Country: None (occurrence: None)
  Receive Date: 20060207
  Receipt Date: 20060201
  Transmission Date: 20060701
  Serious: Yes (Other)
  Sender: FDA-Public Use
  Company Number: PHBS2006BR01766

PATIENT
  Sex: Male

DRUGS (1)
  1. DIOCOMB SI [Suspect]
     Dosage: VALS 160 / SIMV 20 MG
     Route: 048

REACTIONS (2)
  - DEAFNESS [None]
  - DRUG DISPENSING ERROR [None]
